FAERS Safety Report 9073311 (Version 1)
Quarter: 2013Q1

REPORT INFORMATION
  Report Type: Report from Study
  Country: US (occurrence: US)
  Receive Date: 20130129
  Receipt Date: 20130129
  Transmission Date: 20140127
  Serious: No
  Sender: FDA-Public Use
  Company Number: US-ABBOTT-12P-163-0936069-00

PATIENT
  Age: 42 Year
  Sex: Female

DRUGS (15)
  1. HUMIRA 40 MG/0.8 ML PEN [Suspect]
     Indication: CROHN^S DISEASE
     Dosage: LOADING DOSE
     Route: 058
     Dates: start: 20120514, end: 20120514
  2. HUMIRA 40 MG/0.8 ML PEN [Suspect]
     Route: 058
  3. APRIZIO [Concomitant]
     Indication: CROHN^S DISEASE
     Dosage: 4 TABLETS DAILY
  4. EFFEXOR [Concomitant]
     Indication: DEPRESSION
     Dosage: 150MG DAILY
  5. IZOFRAN [Concomitant]
     Indication: NAUSEA
  6. TRAZODONE [Concomitant]
     Indication: INSOMNIA
     Dosage: 200-400MG AT BED TIME
  7. OMEPRAZOLE [Concomitant]
     Indication: GASTROOESOPHAGEAL REFLUX DISEASE
     Dosage: 20MG DAILY
  8. ATIVAN [Concomitant]
     Indication: ANXIETY
     Dosage: 1-2MG
  9. VICODIN [Concomitant]
     Indication: PAIN
     Dosage: 7.5-750MG
  10. PERCOCET [Concomitant]
     Indication: PAIN
     Dosage: 5-325MG
  11. MORPHINE [Concomitant]
     Indication: PAIN
  12. BENADRYL [Concomitant]
     Indication: PRURITUS
     Dosage: 25MG 4 TABLETS WITH ANY NARCOTIC
  13. VIT D [Concomitant]
     Indication: PRODUCT USED FOR UNKNOWN INDICATION
     Dosage: WEEKLY
  14. VIT D3 [Concomitant]
     Indication: PRODUCT USED FOR UNKNOWN INDICATION
     Dosage: DAILY
  15. MULTIVITAMIN [Concomitant]
     Indication: PRODUCT USED FOR UNKNOWN INDICATION
     Dosage: DAILY

REACTIONS (4)
  - Fatigue [Not Recovered/Not Resolved]
  - Headache [Not Recovered/Not Resolved]
  - Nausea [Not Recovered/Not Resolved]
  - Abdominal pain [Not Recovered/Not Resolved]
